FAERS Safety Report 7932865-0 (Version None)
Quarter: 2011Q4

REPORT INFORMATION
  Report Type: 
  Country: None (occurrence: None)
  Receive Date: 20111122
  Receipt Date: 20111118
  Transmission Date: 20120403
  Serious: Yes (Other)
  Sender: FDA-Public Use
  Company Number: US-ROXANE LABORATORIES, INC.-2011-RO-01661RO

PATIENT
  Sex: Male

DRUGS (2)
  1. ADDERALL XR 10 [Concomitant]
  2. FLUTICASONE PROPIONATE [Suspect]
     Indication: NASAL CONGESTION
     Route: 045

REACTIONS (1)
  - CONVULSION [None]
